FAERS Safety Report 22180106 (Version 2)
Quarter: 2023Q2

REPORT INFORMATION
  Report Type: Spontaneous
  Country: JP (occurrence: JP)
  Receive Date: 20230406
  Receipt Date: 20230524
  Transmission Date: 20230721
  Serious: Yes (Other)
  Sender: FDA-Public Use
  Company Number: JP-MSD-2301JPN001465J

PATIENT
  Age: 7 Decade
  Sex: Female

DRUGS (2)
  1. KEYTRUDA [Suspect]
     Active Substance: PEMBROLIZUMAB
     Indication: Uterine cancer
     Dosage: 200 MILLIGRAM, Q3W
     Route: 041
     Dates: end: 202212
  2. LENVATINIB MESYLATE [Suspect]
     Active Substance: LENVATINIB MESYLATE
     Indication: Uterine cancer
     Dosage: 14 MILLIGRAM
     Route: 048
     Dates: start: 202208, end: 202212

REACTIONS (7)
  - Acquired epidermolysis bullosa [Recovered/Resolved]
  - Hypothyroidism [Recovered/Resolved]
  - Pemphigoid [Recovered/Resolved]
  - Mouth haemorrhage [Recovered/Resolved]
  - Hypertension [Recovered/Resolved]
  - Palmar-plantar erythrodysaesthesia syndrome [Recovered/Resolved]
  - Oral mucosal roughening [Unknown]

NARRATIVE: CASE EVENT DATE: 20220101
